FAERS Safety Report 7114315-X (Version None)
Quarter: 2010Q4

REPORT INFORMATION
  Report Type: 
  Country: None (occurrence: None)
  Receive Date: 20101119
  Receipt Date: 20101112
  Transmission Date: 20110411
  Serious: Yes (Death)
  Sender: FDA-Public Use
  Company Number: US-PFIZER INC-2010089050

PATIENT
  Sex: Female

DRUGS (3)
  1. CELEBREX [Suspect]
     Indication: ARTHRITIS
     Dosage: UNK
     Route: 048
  2. PREMPRO [Suspect]
     Dosage: UNK
     Route: 048
  3. ZOLOFT [Suspect]
     Dosage: UNK
     Route: 048

REACTIONS (1)
  - DEATH [None]
